FAERS Safety Report 25953632 (Version 3)
Quarter: 2025Q4

REPORT INFORMATION
  Report Type: Spontaneous
  Country: US (occurrence: US)
  Receive Date: 20251023
  Receipt Date: 20251029
  Transmission Date: 20260118
  Serious: Yes (Hospitalization)
  Sender: BAUSCH AND LOMB
  Company Number: US-BAUSCH-BH-2025-018853

PATIENT
  Age: 45 Year
  Sex: Male
  Weight: 80 kg

DRUGS (2)
  1. DICLOFENAC [Suspect]
     Active Substance: DICLOFENAC
     Indication: Gout
     Dosage: HERBAL PILL FOR GOUT ATTACK AS NEEDED. HE STATED: WHEN HE TAKE IT, IT REALLY WORKS. IT IS A MAGIC PI
     Route: 048
     Dates: start: 201707, end: 2017
  2. DICLOFENAC [Suspect]
     Active Substance: DICLOFENAC
     Dosage: ONE PILL B.I.D RECENTLY
     Route: 065
     Dates: start: 2018, end: 2018

REACTIONS (8)
  - IgA nephropathy [Recovered/Resolved]
  - Glomerulonephritis minimal lesion [Recovered/Resolved]
  - Nephrotic syndrome [Recovered/Resolved]
  - Renal tubular injury [Recovered/Resolved]
  - Tubulointerstitial nephritis [Recovered/Resolved]
  - Acute kidney injury [Recovered/Resolved]
  - Prescription drug used without a prescription [Unknown]
  - Counterfeit product administered [Unknown]

NARRATIVE: CASE EVENT DATE: 20170101
